FAERS Safety Report 11982451 (Version 1)
Quarter: 2016Q1

REPORT INFORMATION
  Report Type: Spontaneous
  Country: US (occurrence: None)
  Receive Date: 20160129
  Receipt Date: 20160129
  Transmission Date: 20160526
  Serious: Yes (Other)
  Sender: FDA-Public Use
  Company Number: None

PATIENT
  Age: 28 Year
  Sex: Female
  Weight: 86.18 kg

DRUGS (2)
  1. DEPO-PROVERA [Suspect]
     Active Substance: MEDROXYPROGESTERONE ACETATE
     Indication: MENSTRUAL CYCLE MANAGEMENT
     Dosage: 1 SHOT EVERY  THREE MONTHS  INTO THE MUSCLE
     Route: 030
     Dates: start: 20150926
  2. ALBUTEROL PROAIR [Concomitant]

REACTIONS (5)
  - Depression [None]
  - Libido decreased [None]
  - Menorrhagia [None]
  - Breast tenderness [None]
  - Vaginal haemorrhage [None]

NARRATIVE: CASE EVENT DATE: 20150926
